FAERS Safety Report 7866902-9 (Version None)
Quarter: 2011Q4

REPORT INFORMATION
  Report Type: 
  Country: None (occurrence: None)
  Receive Date: 20111028
  Receipt Date: 20111024
  Transmission Date: 20120403
  Serious: Yes (Other)
  Sender: FDA-Public Use
  Company Number: US-ABBOTT-11P-163-0857355-00

PATIENT
  Sex: Male
  Weight: 65.376 kg

DRUGS (5)
  1. HUMIRA [Suspect]
     Indication: PSORIATIC ARTHROPATHY
  2. METOLAZONE [Concomitant]
     Indication: BENIGN PROSTATIC HYPERPLASIA
  3. HUMIRA [Suspect]
     Indication: RHEUMATOID ARTHRITIS
     Dosage: 0.8ML EVERY OTHER WEEK
     Route: 058
     Dates: end: 20110921
  4. VITAMIN B-12 [Concomitant]
     Indication: IRON DEFICIENCY ANAEMIA
  5. FOLIC ACID [Concomitant]
     Indication: PRODUCT USED FOR UNKNOWN INDICATION

REACTIONS (6)
  - SQUAMOUS CELL CARCINOMA [None]
  - COLONIC POLYP [None]
  - METASTATIC SQUAMOUS CELL CARCINOMA [None]
  - INGUINAL HERNIA [None]
  - VARICES OESOPHAGEAL [None]
  - LOWER GASTROINTESTINAL HAEMORRHAGE [None]
